FAERS Safety Report 15273229 (Version 3)
Quarter: 2019Q1

REPORT INFORMATION
  Report Type: Report from Study
  Country: US (occurrence: US)
  Receive Date: 20180813
  Receipt Date: 20190322
  Transmission Date: 20190417
  Serious: Yes (Hospitalization, Other)
  Sender: FDA-Public Use
  Company Number: US-ACTELION-A-US2018-175555

PATIENT
  Sex: Female
  Weight: 108.84 kg

DRUGS (5)
  1. DANAZOL. [Concomitant]
     Active Substance: DANAZOL
     Dosage: 100 MG, BID
  2. PREDNISONE. [Concomitant]
     Active Substance: PREDNISONE
     Dosage: 10 MG, QD
  3. VELETRI [Suspect]
     Active Substance: EPOPROSTENOL
     Indication: PULMONARY ARTERIAL HYPERTENSION
     Dosage: 39 NG/KG, PER MIN
     Route: 042
  4. VELETRI [Suspect]
     Active Substance: EPOPROSTENOL
     Dosage: 43.4 NG/KG, PER MIN
     Route: 042
  5. REVATIO [Concomitant]
     Active Substance: SILDENAFIL CITRATE

REACTIONS (6)
  - Pain in jaw [Unknown]
  - Pain in extremity [Unknown]
  - Device damage [Unknown]
  - Foot fracture [Unknown]
  - Fall [Unknown]
  - Transfusion [Unknown]
